FAERS Safety Report 6867426-8 (Version None)
Quarter: 2010Q3

REPORT INFORMATION
  Report Type: 
  Country: None (occurrence: None)
  Receive Date: 20100722
  Receipt Date: 20100712
  Transmission Date: 20110219
  Serious: Yes (Death)
  Sender: FDA-Public Use
  Company Number: TW-PFIZER INC-2010086393

PATIENT
  Age: 59 Year
  Sex: Male
  Weight: 51 kg

DRUGS (11)
  1. SUNITINIB MALATE [Suspect]
     Indication: HEPATIC NEOPLASM MALIGNANT RECURRENT
     Dosage: 37.5 MG, 1X/DAY
     Route: 048
     Dates: start: 20100223
  2. CHLORPHENIRAMINE MALEATE [Concomitant]
     Indication: PROPHYLAXIS
     Dosage: 5 MG, 1X/DAY
     Dates: start: 20100628, end: 20100630
  3. FUROSEMIDE [Concomitant]
     Indication: PROPHYLAXIS
     Dosage: 500 ML, 1X/DAY
     Dates: start: 20100630, end: 20100702
  4. ACETYLCYSTEINE [Concomitant]
     Indication: COUGH
     Dosage: 25 MG, 2X/DAY
     Dates: start: 20100627, end: 20100702
  5. NYSTATIN [Concomitant]
     Indication: MOUTH ULCERATION
     Dosage: 5 ML, 4X/DAY
     Dates: start: 20100701, end: 20100702
  6. TRIAMCINOLONE ACETONIDE [Concomitant]
     Indication: MOUTH ULCERATION
     Dosage: UNK
     Dates: start: 20100617, end: 20100702
  7. CIMETIDINE [Concomitant]
     Indication: ABDOMINAL DISTENSION
     Dosage: 40 MG, 1X/DAY
     Dates: start: 20100701, end: 20100702
  8. SPIRONOLACTONE [Concomitant]
     Indication: OEDEMA
     Dosage: 25 MG, 2X/DAY
     Dates: start: 20100627, end: 20100702
  9. MEGESTROL ACETATE [Concomitant]
     Indication: DECREASED APPETITE
     Dosage: 160 MG, 2X/DAY
     Dates: start: 20100627, end: 20100705
  10. SIMETHICONE [Concomitant]
     Indication: ABDOMINAL DISTENSION
     Dosage: 40 MG, 3X/DAY
     Dates: start: 20100701, end: 20100702
  11. SILYMARIN [Concomitant]
     Indication: HEPATITIS B
     Dosage: 150 MG, 2X/DAY
     Dates: start: 20100701, end: 20100702

REACTIONS (1)
  - DEATH [None]
